FAERS Safety Report 17000324 (Version 1)
Quarter: 2019Q4

REPORT INFORMATION
  Report Type: Spontaneous
  Country: US (occurrence: US)
  Receive Date: 20191106
  Receipt Date: 20191106
  Transmission Date: 20200122
  Serious: Yes (Other)
  Sender: FDA-Public Use
  Company Number: US-ASTRAZENECA-2019SF50353

PATIENT
  Sex: Male

DRUGS (2)
  1. AMLODIPINE BESALATE [Concomitant]
     Indication: HYPERTENSION
  2. BEVESPI AEROSPHERE [Suspect]
     Active Substance: FORMOTEROL FUMARATE\GLYCOPYRROLATE
     Indication: CHRONIC OBSTRUCTIVE PULMONARY DISEASE
     Dosage: TWO TIMES A DAY
     Route: 055

REACTIONS (9)
  - Flatulence [Unknown]
  - Haemorrhoids [Recovered/Resolved]
  - Nephrolithiasis [Unknown]
  - Cough [Recovered/Resolved]
  - Blood urine present [Unknown]
  - Product dose omission [Unknown]
  - Urinary tract infection [Unknown]
  - Blood pressure increased [Unknown]
  - Fatigue [Unknown]
